FAERS Safety Report 13691657 (Version 14)
Quarter: 2018Q3

REPORT INFORMATION
  Report Type: Report from Study
  Country: US (occurrence: US)
  Receive Date: 20170626
  Receipt Date: 20180717
  Transmission Date: 20181010
  Serious: Yes (Hospitalization)
  Sender: FDA-Public Use
  Company Number: US-ACTELION-A-US2016-145900

PATIENT
  Age: 68 Year
  Sex: Female
  Weight: 53.97 kg

DRUGS (6)
  1. VELETRI [Suspect]
     Active Substance: EPOPROSTENOL
     Dosage: 70 NG/KG, PER MIN
     Route: 042
  2. SILDENAFIL CITRATE. [Concomitant]
     Active Substance: SILDENAFIL CITRATE
  3. OPSUMIT [Suspect]
     Active Substance: MACITENTAN
     Indication: PULMONARY HYPERTENSION
     Dosage: 10 MG, QD
     Route: 048
     Dates: start: 20160315
  4. ADCIRCA [Concomitant]
     Active Substance: TADALAFIL
  5. VELETRI [Suspect]
     Active Substance: EPOPROSTENOL
     Indication: PULMONARY HYPERTENSION
     Dosage: UNK
     Route: 042
     Dates: start: 20161017
  6. VELETRI [Suspect]
     Active Substance: EPOPROSTENOL
     Dosage: 28 NG/KG, PER MIN
     Route: 042

REACTIONS (25)
  - Blood creatinine increased [Unknown]
  - Blood calcium decreased [Unknown]
  - Fluid retention [Unknown]
  - Nausea [Unknown]
  - Nasopharyngitis [Unknown]
  - Candida infection [Unknown]
  - Weight fluctuation [Unknown]
  - Pain in extremity [Unknown]
  - Chills [Unknown]
  - Dyspnoea [Unknown]
  - Upper respiratory tract infection [Unknown]
  - Renal impairment [Unknown]
  - Pyrexia [Unknown]
  - Vomiting [Unknown]
  - Fistula repair [Unknown]
  - Colitis [Unknown]
  - Visual impairment [Unknown]
  - Malaise [Unknown]
  - Blood urea increased [Unknown]
  - Tremor [Unknown]
  - Device related infection [Unknown]
  - Cellulitis [Unknown]
  - Device related sepsis [Unknown]
  - Dialysis [Unknown]
  - Gout [Unknown]

NARRATIVE: CASE EVENT DATE: 20170616
